FAERS Safety Report 8039849-5 (Version None)
Quarter: 2012Q1

REPORT INFORMATION
  Report Type: 
  Country: None (occurrence: None)
  Receive Date: 20120111
  Receipt Date: 20111220
  Transmission Date: 20120608
  Serious: No
  Sender: FDA-Public Use
  Company Number: US-AMGEN-USASP2011067997

PATIENT
  Sex: Female

DRUGS (1)
  1. ENBREL [Suspect]
     Indication: PSORIATIC ARTHROPATHY
     Dosage: 50 MG, QWK
     Dates: start: 20111101

REACTIONS (6)
  - OROPHARYNGEAL PAIN [None]
  - VIRAL INFECTION [None]
  - HEADACHE [None]
  - SNEEZING [None]
  - INJECTION SITE REACTION [None]
  - PARANASAL SINUS HYPERSECRETION [None]
